FAERS Safety Report 8921786 (Version 1)
Quarter: 2012Q4

REPORT INFORMATION
  Report Type: Report from Study
  Country: JP (occurrence: JP)
  Receive Date: 20121121
  Receipt Date: 20121121
  Transmission Date: 20130627
  Serious: Yes (Hospitalization, Other)
  Sender: FDA-Public Use
  Company Number: JP-VERTEX PHARMACEUTICAL INC.-AE-2012-005901

PATIENT
  Age: 64 Year
  Sex: Female

DRUGS (11)
  1. VX-950 (TELAPREVIR) [Suspect]
     Indication: CHRONIC HEPATITIS C
     Dosage: 2250 mg, qd
     Route: 048
     Dates: start: 20120306, end: 20120417
  2. VX-950 (TELAPREVIR) [Suspect]
     Dosage: 1500 UNK, UNK
     Dates: start: 20120418, end: 20120421
  3. RIBAVIRIN [Suspect]
     Indication: CHRONIC HEPATITIS C
     Dosage: 600 mg, qd
     Route: 048
     Dates: start: 20120306, end: 20120325
  4. RIBAVIRIN [Suspect]
     Dosage: 400 mg, qd
     Route: 048
     Dates: start: 20120326, end: 20120417
  5. RIBAVIRIN [Suspect]
     Dosage: 200 mg, qd
     Route: 048
     Dates: start: 20120418, end: 20120421
  6. RIBAVIRIN [Suspect]
     Dosage: 200 mg, qd
     Route: 048
     Dates: start: 20120515
  7. PEGINTERFERON ALFA-2B [Suspect]
     Indication: CHRONIC HEPATITIS C
     Dosage: 1.5 ?g/kg, qw
     Route: 058
     Dates: start: 20120306, end: 20120421
  8. PEGINTERFERON ALFA-2B [Suspect]
     Dosage: 1.5 ?g/kg, qw
     Route: 058
     Dates: start: 20120515
  9. URSO                               /00465701/ [Concomitant]
     Dosage: 900 mg, qd
     Route: 048
     Dates: end: 20120330
  10. URSO                               /00465701/ [Concomitant]
     Dosage: 300 mg, qd
     Route: 048
     Dates: start: 20120331
  11. NEO-MINOPHAGEN C [Concomitant]
     Dosage: 60 ml, qd
     Route: 042

REACTIONS (3)
  - Decreased appetite [Not Recovered/Not Resolved]
  - Malaise [Recovered/Resolved]
  - Anaemia [Not Recovered/Not Resolved]
